FAERS Safety Report 4810889-X (Version None)
Quarter: 2005Q4

REPORT INFORMATION
  Report Type: 
  Country: None (occurrence: None)
  Receive Date: 20051027
  Receipt Date: 20051024
  Transmission Date: 20060501
  Serious: Yes (Death)
  Sender: FDA-Public Use
  Company Number: GB-BOEHRINGER INGELHEIM PHARMACEUTICALS, INC.-2005-UK-02146UK

PATIENT
  Age: 45 Year
  Sex: Male
  Weight: 80 kg

DRUGS (5)
  1. MOBIC [Suspect]
     Indication: OSTEOARTHRITIS
     Route: 048
     Dates: start: 20040810
  2. CELEBREX [Suspect]
     Indication: OSTEOARTHRITIS
     Dosage: 100MG BD
     Route: 048
     Dates: start: 20041102
  3. NAPROXEN [Concomitant]
     Indication: OSTEOARTHRITIS
     Route: 048
     Dates: end: 20040801
  4. SYNVISC [Concomitant]
     Indication: OSTEOARTHRITIS
     Route: 014
     Dates: start: 20031201, end: 20031201
  5. CAPSAICIN [Concomitant]
     Indication: OSTEOARTHRITIS
     Route: 061
     Dates: start: 20041102

REACTIONS (3)
  - ARTERIOSCLEROSIS CORONARY ARTERY [None]
  - MYOCARDIAL INFARCTION [None]
  - MYOCARDIAL ISCHAEMIA [None]
